FAERS Safety Report 17017000 (Version 1)
Quarter: 2019Q4

REPORT INFORMATION
  Report Type: Spontaneous
  Country: US (occurrence: US)
  Receive Date: 20191111
  Receipt Date: 20191111
  Transmission Date: 20200122
  Serious: No
  Sender: FDA-Public Use
  Company Number: US-JNJFOC-20191040800

PATIENT
  Age: 71 Year
  Sex: Male
  Weight: 72.3 kg

DRUGS (1)
  1. DARZALEX [Suspect]
     Active Substance: DARATUMUMAB
     Indication: TEMPI SYNDROME
     Route: 015
     Dates: start: 201903, end: 20190729

REACTIONS (4)
  - Product dose omission [Unknown]
  - Product use in unapproved indication [Unknown]
  - Incorrect route of product administration [Unknown]
  - Off label use [Unknown]

NARRATIVE: CASE EVENT DATE: 201903
